FAERS Safety Report 6533238-8 (Version None)
Quarter: 2010Q1

REPORT INFORMATION
  Report Type: 
  Country: None (occurrence: None)
  Receive Date: 20100111
  Receipt Date: 20100104
  Transmission Date: 20100710
  Serious: Yes (Hospitalization)
  Sender: FDA-Public Use
  Company Number: TR-ABBOTT-10P-161-0617547-00

PATIENT
  Age: 15 Year
  Sex: Female
  Weight: 50 kg

DRUGS (1)
  1. TARKA [Suspect]
     Indication: SUICIDE ATTEMPT
     Dosage: 12 - 4/240 MG TABS
     Route: 048
     Dates: start: 20091231, end: 20091231

REACTIONS (4)
  - BRADYCARDIA [None]
  - DYSPNOEA [None]
  - HYPOTENSION [None]
  - SUICIDE ATTEMPT [None]
